FAERS Safety Report 24773577 (Version 2)
Quarter: 2025Q1

REPORT INFORMATION
  Report Type: Spontaneous
  Country: US (occurrence: US)
  Receive Date: 20241225
  Receipt Date: 20250102
  Transmission Date: 20250408
  Serious: No
  Sender: ROCHE
  Company Number: US-ROCHE-10000161526

PATIENT
  Sex: Male

DRUGS (1)
  1. NUTROPIN [Suspect]
     Active Substance: SOMATROPIN
     Indication: Short stature
     Route: 058

REACTIONS (3)
  - Product complaint [Unknown]
  - Device defective [Unknown]
  - No adverse event [Unknown]
